FAERS Safety Report 6965822-1 (Version None)
Quarter: 2010Q3

REPORT INFORMATION
  Report Type: 
  Country: None (occurrence: None)
  Receive Date: 20100903
  Receipt Date: 20100902
  Transmission Date: 20110219
  Serious: Yes (Hospitalization)
  Sender: FDA-Public Use
  Company Number: FR-ROCHE-724920

PATIENT
  Sex: Female

DRUGS (1)
  1. ROCEPHIN [Suspect]
     Route: 030
     Dates: start: 20100403, end: 20100419

REACTIONS (3)
  - CHOLECYSTITIS ACUTE [None]
  - CHOLELITHIASIS [None]
  - RASH [None]
